FAERS Safety Report 20435793 (Version 1)
Quarter: 2022Q1

REPORT INFORMATION
  Report Type: Spontaneous
  Country: US (occurrence: US)
  Receive Date: 20220207
  Receipt Date: 20220207
  Transmission Date: 20220423
  Serious: No
  Sender: FDA-Public Use
  Company Number: US-AMGEN-USASP2022017025

PATIENT
  Sex: Female

DRUGS (2)
  1. MVASI [Suspect]
     Active Substance: BEVACIZUMAB-AWWB
     Indication: Ovarian cancer
     Dosage: 1250 MILLIGRAM
     Route: 065
  2. CARBOPLATIN [Concomitant]
     Active Substance: CARBOPLATIN

REACTIONS (2)
  - Feeling hot [Recovered/Resolved]
  - Nausea [Recovered/Resolved]
